FAERS Safety Report 6973856-6 (Version None)
Quarter: 2010Q3

REPORT INFORMATION
  Report Type: 
  Country: None (occurrence: None)
  Receive Date: 20100909
  Receipt Date: 20100831
  Transmission Date: 20110219
  Serious: Yes (Other)
  Sender: FDA-Public Use
  Company Number: B0665615A

PATIENT
  Sex: Female
  Weight: 56.6 kg

DRUGS (14)
  1. ZENTEL [Suspect]
     Indication: HELMINTHIC INFECTION
     Dosage: 800MG PER DAY
     Route: 065
     Dates: start: 20100730, end: 20100802
  2. VALPROATE SODIUM [Concomitant]
     Route: 065
  3. ADALAT [Concomitant]
     Indication: HYPERTENSION
     Dosage: 20MG TWICE PER DAY
  4. ADVANTAN [Concomitant]
  5. CICLESONIDE [Concomitant]
     Indication: ASTHMA
  6. BRICANYL [Concomitant]
     Indication: ASTHMA
  7. COLOFAC [Concomitant]
     Dosage: 135MG AS REQUIRED
  8. DIAZEPAM [Concomitant]
     Dosage: 2MG VARIABLE DOSE
  9. ENDONE [Concomitant]
  10. PRILOSEC [Concomitant]
     Dosage: 20MG TWICE PER DAY
  11. MOTILIUM [Concomitant]
     Dosage: 10MG TWICE PER DAY
  12. OVESTIN [Concomitant]
  13. OXYCONTIN [Concomitant]
     Dosage: 10MG VARIABLE DOSE
  14. LEVOTHYROXINE SODIUM [Concomitant]

REACTIONS (18)
  - ABNORMAL BEHAVIOUR [None]
  - ARTHRALGIA [None]
  - ASTHENIA [None]
  - BACK PAIN [None]
  - CONTUSION [None]
  - DEPRESSION [None]
  - DRUG INEFFECTIVE [None]
  - DYSKINESIA [None]
  - FATIGUE [None]
  - HEADACHE [None]
  - HYPOAESTHESIA [None]
  - INFECTION [None]
  - NAUSEA [None]
  - PYREXIA [None]
  - RASH [None]
  - VISION BLURRED [None]
  - VOMITING [None]
  - YELLOW SKIN [None]
